FAERS Safety Report 8908780 (Version 1)
Quarter: 2012Q4

REPORT INFORMATION
  Report Type: 
  Country: ZA (occurrence: ZA)
  Receive Date: 20121114
  Receipt Date: 20121114
  Transmission Date: 20130627
  Serious: Yes (Hospitalization)
  Sender: FDA-Public Use
  Company Number: ZA-ELI_LILLY_AND_COMPANY-ZA201211004131

PATIENT
  Sex: Female

DRUGS (7)
  1. HUMALOG 25% LISPRO, 75% NPL [Suspect]
     Indication: DIABETES MELLITUS
     Dosage: 34 u, each morning
     Route: 058
     Dates: start: 1992
  2. HUMALOG 25% LISPRO, 75% NPL [Suspect]
     Dosage: 28 u, each evening
     Route: 058
     Dates: start: 1992
  3. STILPANE                           /01152401/ [Concomitant]
     Indication: PAIN
     Dosage: 2 DF, prn
     Route: 048
  4. COXFLAM [Concomitant]
     Indication: PAIN
     Dosage: 2 DF, prn
     Route: 048
  5. INDERAL LA [Concomitant]
     Indication: CARDIAC DISORDER
     Dosage: UNK, unknown
     Route: 048
  6. ECOTRIN [Concomitant]
     Dosage: 1 DF, 3/W
     Route: 048
  7. DIOTROXIN [Concomitant]
     Indication: HYPOTHYROIDISM
     Dosage: UNK, unknown
     Route: 048

REACTIONS (2)
  - Back pain [Unknown]
  - Cataract [Unknown]
